FAERS Safety Report 6402081-2 (Version None)
Quarter: 2009Q4

REPORT INFORMATION
  Report Type: 
  Country: None (occurrence: None)
  Receive Date: 20091015
  Receipt Date: 20091013
  Transmission Date: 20100525
  Serious: Yes (Life-Threatening, Other)
  Sender: FDA-Public Use
  Company Number: US-BRISTOL-MYERS SQUIBB COMPANY-14816110

PATIENT
  Age: 24 Year
  Sex: Male
  Weight: 77 kg

DRUGS (3)
  1. ATAZANAVIR [Suspect]
     Indication: HIV INFECTION
     Dosage: INTERRUPTED ON 08OCT09; LAST DOSE-07OCT09
     Route: 048
     Dates: start: 20090813
  2. RITONAVIR [Suspect]
     Indication: HIV INFECTION
     Dosage: INTERRUPTED ON 08OCT09; LAST DOSE-07OCT09
     Route: 048
     Dates: start: 20090813
  3. EMTRICITABINE AND TENOFOVIR DISOPROXIL FUMARATE [Suspect]
     Indication: HIV INFECTION
     Dosage: INTERRUPTED ON 08OCT09; LAST DOSE-07OCT09; 1DF- 200/300MG
     Route: 048
     Dates: start: 20090813

REACTIONS (2)
  - HEPATITIS [None]
  - RASH MACULO-PAPULAR [None]
